FAERS Safety Report 19153783 (Version 2)
Quarter: 2021Q2

REPORT INFORMATION
  Report Type: Spontaneous
  Country: US (occurrence: US)
  Receive Date: 20210419
  Receipt Date: 20210521
  Transmission Date: 20210717
  Serious: No
  Sender: FDA-Public Use
  Company Number: NVSC2021US087949

PATIENT
  Age: 59 Year
  Sex: Male

DRUGS (1)
  1. VOLTAREN [Suspect]
     Active Substance: DICLOFENAC SODIUM
     Indication: ARTHRITIS
     Dosage: UNK
     Route: 065
     Dates: start: 20210413, end: 20210413

REACTIONS (3)
  - Product complaint [Unknown]
  - Wrong technique in product usage process [Unknown]
  - Packaging design issue [Unknown]

NARRATIVE: CASE EVENT DATE: 20210413
